FAERS Safety Report 16075260 (Version 1)
Quarter: 2019Q1

REPORT INFORMATION
  Report Type: Spontaneous
  Country: ZA (occurrence: ZA)
  Receive Date: 20190315
  Receipt Date: 20190315
  Transmission Date: 20190418
  Serious: Yes (Other)
  Sender: FDA-Public Use
  Company Number: ZA-LUPIN HEALTHCARE (UK) LIMITED-2019-01397

PATIENT
  Age: 78 Year
  Sex: Female

DRUGS (7)
  1. ADCO-ZOLPIDEM [Suspect]
     Active Substance: ZOLPIDEM TARTRATE
     Indication: INSOMNIA
     Dosage: 10 MILLIGRAM
     Route: 048
  2. LANCAP [Suspect]
     Active Substance: LANSOPRAZOLE
     Indication: ULCER
     Dosage: 30 MILLIGRAM
     Route: 048
  3. LISORETIC TABLET [Suspect]
     Active Substance: HYDROCHLOROTHIAZIDE\LISINOPRIL
     Indication: HYPERTENSION
     Dosage: 10/12.5MG
     Route: 048
  4. RIVOTRIL [Suspect]
     Active Substance: CLONAZEPAM
     Indication: STRESS
     Dosage: 2 MILLIGRAM
     Route: 048
  5. ELTROXIN [Suspect]
     Active Substance: LEVOTHYROXINE
     Indication: THYROID DISORDER
     Dosage: 100 MCG
     Route: 048
  6. PREMARIN [Suspect]
     Active Substance: ESTROGENS, CONJUGATED
     Indication: HORMONE THERAPY
     Dosage: 0.3 MILLIGRAM
     Route: 048
  7. SINOPREN [Suspect]
     Active Substance: LISINOPRIL
     Indication: HYPERTENSION
     Dosage: 10 MILLIGRAM
     Route: 048

REACTIONS (1)
  - Cerebrovascular accident [Unknown]

NARRATIVE: CASE EVENT DATE: 20190225
